FAERS Safety Report 14799040 (Version 1)
Quarter: 2018Q2

REPORT INFORMATION
  Report Type: Spontaneous
  Country: US (occurrence: US)
  Receive Date: 20180416
  Receipt Date: 20180416
  Transmission Date: 20180711
  Serious: Yes (Other)
  Sender: FDA-Public Use
  Company Number: None

PATIENT
  Age: 39 Year
  Sex: Female
  Weight: 58.97 kg

DRUGS (3)
  1. IRON [Concomitant]
     Active Substance: IRON
  2. MIRENA [Suspect]
     Active Substance: LEVONORGESTREL
     Dates: start: 20090508, end: 20150501
  3. MULTI VITAMIN [Concomitant]
     Active Substance: VITAMINS

REACTIONS (3)
  - Device difficult to use [None]
  - Infection [None]
  - Pelvic pain [None]

NARRATIVE: CASE EVENT DATE: 20150413
